FAERS Safety Report 6647027-7 (Version None)
Quarter: 2010Q1

REPORT INFORMATION
  Report Type: 
  Country: None (occurrence: None)
  Receive Date: 20100323
  Receipt Date: 20100208
  Transmission Date: 20100710
  Serious: No
  Sender: FDA-Public Use
  Company Number: A0843483A

PATIENT
  Age: 62 Year
  Sex: Female

DRUGS (2)
  1. LAMICTAL XR [Suspect]
     Dosage: 50MG PER DAY
     Route: 048
     Dates: start: 20100128, end: 20100204
  2. DILANTIN [Concomitant]

REACTIONS (2)
  - DIPLOPIA [None]
  - VISION BLURRED [None]
